FAERS Safety Report 10600826 (Version 1)
Quarter: 2014Q4

REPORT INFORMATION
  Report Type: Spontaneous
  Country: US (occurrence: None)
  Receive Date: 20141121
  Receipt Date: 20141121
  Transmission Date: 20150529
  Serious: Yes (Other)
  Sender: FDA-Public Use
  Company Number: None

PATIENT
  Age: 74 Year
  Sex: Male
  Weight: 68 kg

DRUGS (1)
  1. ISOVUE-M 200 [Suspect]
     Active Substance: IOPAMIDOL
     Indication: SPINAL MYELOGRAM
     Route: 037
     Dates: start: 20141119, end: 20141119

REACTIONS (6)
  - Seizure [None]
  - Pupil fixed [None]
  - Disorientation [None]
  - Respiratory arrest [None]
  - Foaming at mouth [None]
  - Depressed level of consciousness [None]

NARRATIVE: CASE EVENT DATE: 20141119
